FAERS Safety Report 14362962 (Version 2)
Quarter: 2018Q2

REPORT INFORMATION
  Report Type: Spontaneous
  Country: US (occurrence: US)
  Receive Date: 20180108
  Receipt Date: 20180402
  Transmission Date: 20180711
  Serious: Yes (Other)
  Sender: FDA-Public Use
  Company Number: US-JNJFOC-20171219138

PATIENT
  Age: 41 Year
  Sex: Female
  Weight: 58.06 kg

DRUGS (7)
  1. CALCIUM + MAGNESIUM [Concomitant]
     Route: 065
  2. EPIPEN [Concomitant]
     Active Substance: EPINEPHRINE
     Route: 065
  3. CALCIUM [Concomitant]
     Active Substance: CALCIUM
     Route: 048
  4. STELARA [Suspect]
     Active Substance: USTEKINUMAB
     Indication: CROHN^S DISEASE
     Dosage: INITIAL INFUSION
     Route: 042
     Dates: start: 20170418
  5. STELARA [Suspect]
     Active Substance: USTEKINUMAB
     Indication: CROHN^S DISEASE
     Dosage: SUBCUTANEOUS DOSE.
     Route: 042
     Dates: start: 2017
  6. DEPO-PROVERA [Concomitant]
     Active Substance: MEDROXYPROGESTERONE ACETATE
     Indication: CONTRACEPTION
     Route: 050
  7. SUDAFED [Concomitant]
     Active Substance: PSEUDOEPHEDRINE HYDROCHLORIDE
     Route: 065

REACTIONS (15)
  - Surgery [Unknown]
  - Swelling face [Not Recovered/Not Resolved]
  - Stress fracture [Recovered/Resolved]
  - Vision blurred [Recovered/Resolved]
  - Sinusitis [Not Recovered/Not Resolved]
  - Oral herpes [Not Recovered/Not Resolved]
  - Alopecia [Not Recovered/Not Resolved]
  - Crohn^s disease [Unknown]
  - Respiratory rate increased [Not Recovered/Not Resolved]
  - Feeling abnormal [Not Recovered/Not Resolved]
  - Fatigue [Not Recovered/Not Resolved]
  - Drug intolerance [Unknown]
  - Dry skin [Not Recovered/Not Resolved]
  - Mood altered [Not Recovered/Not Resolved]
  - Heart rate increased [Not Recovered/Not Resolved]

NARRATIVE: CASE EVENT DATE: 2017
